FAERS Safety Report 11943437 (Version 1)
Quarter: 2016Q1

REPORT INFORMATION
  Report Type: Spontaneous
  Country: US (occurrence: US)
  Receive Date: 20160125
  Receipt Date: 20160125
  Transmission Date: 20160526
  Serious: No
  Sender: FDA-Public Use
  Company Number: US-UNITED THERAPEUTICS-UNT-2015-012223

PATIENT
  Age: 72 Year
  Sex: Female
  Weight: 54.88 kg

DRUGS (3)
  1. TYVASO [Suspect]
     Active Substance: TREPROSTINIL
     Dosage: UNK
  2. TYVASO [Suspect]
     Active Substance: TREPROSTINIL
     Indication: PULMONARY ARTERIAL HYPERTENSION
     Dosage: 18-54 MICROGRAMS, QID
     Dates: start: 20150309
  3. GABAPENTIN. [Suspect]
     Active Substance: GABAPENTIN
     Indication: PRODUCT USED FOR UNKNOWN INDICATION
     Dosage: UNK
     Dates: start: 201509

REACTIONS (9)
  - Asthenia [Unknown]
  - Feeling drunk [Unknown]
  - Anxiety [Unknown]
  - Drug dose omission [Unknown]
  - Epistaxis [Unknown]
  - Dizziness [Unknown]
  - Muscle spasms [Recovering/Resolving]
  - Hyperhidrosis [Unknown]
  - Varicose vein [Unknown]

NARRATIVE: CASE EVENT DATE: 201509
